FAERS Safety Report 15100632 (Version 2)
Quarter: 2018Q3

REPORT INFORMATION
  Report Type: Spontaneous
  Country: BR (occurrence: BR)
  Receive Date: 20180703
  Receipt Date: 20180706
  Transmission Date: 20181010
  Serious: Yes (Other)
  Sender: FDA-Public Use
  Company Number: BR-ABBVIE-18S-020-2405613-00

PATIENT
  Age: 53 Year
  Sex: Female

DRUGS (3)
  1. ANDROGEL [Suspect]
     Active Substance: TESTOSTERONE
     Indication: ANDROGEN DEFICIENCY
     Dosage: 1 SACHET DAILY (50 MG,1 IN 1 D)
     Route: 061
     Dates: end: 201711
  2. ANDROGEL [Suspect]
     Active Substance: TESTOSTERONE
     Dosage: 1 SACHET DAILY (50 MG,1 IN 1 D)
     Route: 061
     Dates: start: 201802, end: 201804
  3. ANDROGEL [Suspect]
     Active Substance: TESTOSTERONE
     Indication: HORMONE REPLACEMENT THERAPY
     Dosage: 1 SACHET DAILY (50 MG,1 IN 1 D)
     Route: 061
     Dates: start: 201711

REACTIONS (3)
  - Off label use [Unknown]
  - Product availability issue [Unknown]
  - Spinal cord infection [Recovered/Resolved]

NARRATIVE: CASE EVENT DATE: 201711
